FAERS Safety Report 7040014-9 (Version None)
Quarter: 2010Q4

REPORT INFORMATION
  Report Type: 
  Country: None (occurrence: None)
  Receive Date: 20101012
  Receipt Date: 20101005
  Transmission Date: 20110411
  Serious: Yes (Hospitalization)
  Sender: FDA-Public Use
  Company Number: US-AMGEN-KDL443973

PATIENT
  Sex: Female
  Weight: 53.1 kg

DRUGS (11)
  1. PROCRIT [Suspect]
     Indication: ANAEMIA
     Route: 065
     Dates: start: 20100501
  2. UNSPECIFIED MEDICATION [Concomitant]
     Route: 048
  3. EXJADE [Concomitant]
     Route: 048
  4. FOLIC ACID [Concomitant]
     Route: 048
  5. GABAPENTIN [Concomitant]
     Route: 048
  6. K-DUR [Concomitant]
     Route: 048
  7. METOPROLOL TARTRATE [Concomitant]
     Route: 048
  8. METRONIDAZOLE [Concomitant]
     Route: 048
  9. OMEPRAZOLE [Concomitant]
     Route: 048
  10. UNSPECIFIED TOPICAL PRODUCT [Concomitant]
     Route: 061
  11. VESICARE [Concomitant]
     Route: 048

REACTIONS (1)
  - HOSPITALISATION [None]
